FAERS Safety Report 12486075 (Version 3)
Quarter: 2017Q1

REPORT INFORMATION
  Report Type: Spontaneous
  Country: IE (occurrence: IE)
  Receive Date: 20160621
  Receipt Date: 20170301
  Transmission Date: 20170428
  Serious: Yes (Life-Threatening, Hospitalization)
  Sender: FDA-Public Use
  Company Number: IE-PFIZER INC-2016306788

PATIENT
  Age: 39 Year
  Sex: Female

DRUGS (7)
  1. FOLIC ACID. [Concomitant]
     Active Substance: FOLIC ACID
     Dosage: UNK
  2. DIAZEMULS [Suspect]
     Active Substance: DIAZEPAM
     Indication: SEDATIVE THERAPY
     Dosage: 5 MG, UNK
     Route: 042
     Dates: start: 20160525
  3. PREGNYL [Suspect]
     Active Substance: CHORIOGONADOTROPIN ALFA
     Indication: IN VITRO FERTILISATION
     Dosage: 10000 IU, 1X/DAY
     Dates: start: 20160523, end: 20160523
  4. SYNAREL [Suspect]
     Active Substance: NAFARELIN ACETATE
     Indication: IN VITRO FERTILISATION
     Dosage: 2 DF, 2X/DAY
     Route: 045
     Dates: start: 20160427, end: 20160523
  5. PUREGON /01348901/ [Suspect]
     Active Substance: FOLLITROPIN
     Indication: IN VITRO FERTILISATION
     Dosage: 300 IU, 1X/DAY
     Route: 058
     Dates: start: 20160512
  6. PUREGON /01348901/ [Suspect]
     Active Substance: FOLLITROPIN
     Dosage: 375 IU, 1X/DAY
     Route: 058
     Dates: start: 20160517
  7. PETHIDINE [Suspect]
     Active Substance: MEPERIDINE
     Indication: SEDATIVE THERAPY
     Dosage: 75 MG, UNK
     Route: 042
     Dates: start: 20160525

REACTIONS (2)
  - Vertebral artery dissection [Recovering/Resolving]
  - Basilar artery thrombosis [Recovering/Resolving]

NARRATIVE: CASE EVENT DATE: 20160529
